FAERS Safety Report 22996981 (Version 2)
Quarter: 2023Q4

REPORT INFORMATION
  Report Type: Spontaneous
  Country: PL (occurrence: PL)
  Receive Date: 20230928
  Receipt Date: 20231016
  Transmission Date: 20240110
  Serious: Yes (Other)
  Sender: FDA-Public Use
  Company Number: PL-AstraZeneca-2023A217482

PATIENT
  Age: 261 Day
  Sex: Male
  Weight: 6 kg

DRUGS (4)
  1. PALIVIZUMAB [Suspect]
     Active Substance: PALIVIZUMAB
     Indication: Prophylaxis
     Dosage: EVERY FOUR WEEKS, UNKNOWN
     Route: 030
     Dates: start: 20230919
  2. VITAMIN D3 [Concomitant]
     Active Substance: CHOLECALCIFEROL
     Indication: Product used for unknown indication
     Dosage: UNKNOWN
  3. LACTULOSUM [Concomitant]
     Indication: Product used for unknown indication
     Dosage: UNKNOWN
  4. SIDERAL [Concomitant]
     Indication: Product used for unknown indication
     Dosage: UNKNOWN

REACTIONS (5)
  - Infantile vomiting [Recovered/Resolved]
  - Urticaria [Recovered/Resolved]
  - Cough [Recovered/Resolved]
  - Bronchial obstruction [Recovered/Resolved]
  - Rash papular [Recovered/Resolved]

NARRATIVE: CASE EVENT DATE: 20230919
